FAERS Safety Report 7540361-8 (Version None)
Quarter: 2011Q2

REPORT INFORMATION
  Report Type: 
  Country: None (occurrence: None)
  Receive Date: 20110610
  Receipt Date: 20110527
  Transmission Date: 20111010
  Serious: Yes (Death)
  Sender: FDA-Public Use
  Company Number: IT-CELGENEUS-083-21880-11053744

PATIENT

DRUGS (1)
  1. REVLIMID [Suspect]
     Route: 048
     Dates: end: 20100622

REACTIONS (1)
  - DEATH [None]
